FAERS Safety Report 15188335 (Version 2)
Quarter: 2018Q3

REPORT INFORMATION
  Report Type: Spontaneous
  Country: GB (occurrence: GB)
  Receive Date: 20180724
  Receipt Date: 20180726
  Transmission Date: 20181010
  Serious: Yes (Hospitalization, Other)
  Sender: FDA-Public Use
  Company Number: GB-009507513-1807GBR007789

PATIENT
  Sex: Male
  Weight: 79.3 kg

DRUGS (35)
  1. PEMBROLIZUMAB. [Suspect]
     Active Substance: PEMBROLIZUMAB
     Dosage: 200 MG, Q3W
     Route: 042
     Dates: start: 20180502
  2. PEMETREXED DISODIUM [Suspect]
     Active Substance: PEMETREXED DISODIUM
     Dosage: UNK
     Route: 042
     Dates: start: 20180502
  3. XYLOPROCT [Concomitant]
     Indication: PRODUCT USED FOR UNKNOWN INDICATION
     Dosage: UNK
     Route: 065
     Dates: start: 20170419, end: 20180502
  4. NITROGLYCERIN. [Concomitant]
     Active Substance: NITROGLYCERIN
     Indication: NON-SMALL CELL LUNG CANCER
     Dosage: 0.4 MG, UNK
  5. DIHYDROCODEINE [Concomitant]
     Active Substance: DIHYDROCODEINE
     Indication: NON-SMALL CELL LUNG CANCER
     Dosage: UNK
  6. PEMBROLIZUMAB. [Suspect]
     Active Substance: PEMBROLIZUMAB
     Dosage: 200 MG, Q3W
     Route: 042
     Dates: start: 20180405, end: 20180405
  7. ACETAMINOPHEN. [Concomitant]
     Active Substance: ACETAMINOPHEN
     Indication: NON-SMALL CELL LUNG CANCER
     Dosage: UNK
  8. PEMETREXED DISODIUM [Suspect]
     Active Substance: PEMETREXED DISODIUM
     Indication: NON-SMALL CELL LUNG CANCER
     Dosage: 500 MG/M2, Q3W
     Route: 042
     Dates: start: 20180312, end: 20180312
  9. INCB24360 [Suspect]
     Active Substance: EPACADOSTAT
     Dosage: UNK
     Route: 065
     Dates: start: 20180405, end: 20180413
  10. ONDANSETRON [Concomitant]
     Active Substance: ONDANSETRON
     Indication: PRODUCT USED FOR UNKNOWN INDICATION
     Dosage: 8 MG, UNK
     Route: 065
     Dates: start: 20170312
  11. MORPHINE SULFATE. [Concomitant]
     Active Substance: MORPHINE SULFATE
     Indication: NON-SMALL CELL LUNG CANCER
     Dosage: 10 MG, UNK
     Dates: start: 20080101
  12. DOCUSATE SODIUM. [Concomitant]
     Active Substance: DOCUSATE SODIUM
     Indication: NON-SMALL CELL LUNG CANCER
     Dosage: UNK
  13. BISOPROLOL [Concomitant]
     Active Substance: BISOPROLOL
     Indication: NON-SMALL CELL LUNG CANCER
     Dosage: 2.5 MG, UNK
     Dates: start: 20070101
  14. PEMBROLIZUMAB. [Suspect]
     Active Substance: PEMBROLIZUMAB
     Indication: NON-SMALL CELL LUNG CANCER
     Dosage: 200 MG, Q3W
     Route: 042
     Dates: start: 20180312, end: 20180312
  15. CARBOPLATIN. [Suspect]
     Active Substance: CARBOPLATIN
     Indication: NON-SMALL CELL LUNG CANCER
     Dosage: UNK
     Route: 042
     Dates: start: 20180312, end: 20180312
  16. QUININE BISULFATE [Concomitant]
     Active Substance: QUININE BISULFATE
     Indication: NON-SMALL CELL LUNG CANCER
     Dosage: 300 MG, UNK
     Dates: start: 20080101
  17. RAMIPRIL. [Concomitant]
     Active Substance: RAMIPRIL
     Indication: NON-SMALL CELL LUNG CANCER
     Dosage: UNK
     Dates: start: 200101
  18. ASPIRIN. [Concomitant]
     Active Substance: ASPIRIN
     Indication: NON-SMALL CELL LUNG CANCER
     Dosage: 75 MG, UNK
     Dates: start: 200101
  19. SENNA [Concomitant]
     Active Substance: SENNA LEAF\SENNOSIDES\SENNOSIDES A AND B
     Indication: NON-SMALL CELL LUNG CANCER
     Dosage: 75 MG, UNK
     Dates: start: 20080101
  20. INSTILLAGEL [Concomitant]
     Active Substance: CHLORHEXIDINE GLUCONATE\LIDOCAINE HYDROCHLORIDE
     Indication: PRODUCT USED FOR UNKNOWN INDICATION
     Dosage: UNK
     Route: 065
     Dates: start: 20170414, end: 20180416
  21. PEMETREXED DISODIUM [Suspect]
     Active Substance: PEMETREXED DISODIUM
     Dosage: UNK
     Route: 042
     Dates: start: 20180405, end: 20180405
  22. INCB24360 [Suspect]
     Active Substance: EPACADOSTAT
     Indication: NON-SMALL CELL LUNG CANCER
     Dosage: UNK
     Route: 065
     Dates: start: 20180312, end: 20180404
  23. GRANULOCYTE COLONY STIMULATING FACTOR (UNSPECIFIED) [Concomitant]
     Active Substance: FILGRASTIM
     Indication: PRODUCT USED FOR UNKNOWN INDICATION
     Dosage: 300 MICROGRAM, UNK
     Route: 065
     Dates: start: 20180414, end: 20180414
  24. LANSOPRAZOLE. [Concomitant]
     Active Substance: LANSOPRAZOLE
     Indication: NON-SMALL CELL LUNG CANCER
     Dosage: UNK
     Dates: start: 20080101
  25. CARBOPLATIN. [Suspect]
     Active Substance: CARBOPLATIN
     Dosage: UNK
     Route: 042
     Dates: start: 20180405, end: 20180405
  26. CARBOPLATIN. [Suspect]
     Active Substance: CARBOPLATIN
     Dosage: UNK
     Route: 042
     Dates: start: 20180502
  27. TINZAPARIN SODIUM [Concomitant]
     Active Substance: TINZAPARIN SODIUM
     Indication: PRODUCT USED FOR UNKNOWN INDICATION
     Dosage: 4500 DF, UNK
     Route: 065
     Dates: start: 20170413, end: 20180415
  28. CARBAMAZEPINE. [Concomitant]
     Active Substance: CARBAMAZEPINE
     Indication: PRODUCT USED FOR UNKNOWN INDICATION
     Dosage: 200 MG, UNK
     Route: 065
     Dates: start: 20170413, end: 20180416
  29. AMLODIPINE [Concomitant]
     Active Substance: AMLODIPINE BESYLATE
     Indication: NON-SMALL CELL LUNG CANCER
     Dosage: 5 MG, UNK
  30. DEXAMETHASONE. [Concomitant]
     Active Substance: DEXAMETHASONE
     Indication: PRODUCT USED FOR UNKNOWN INDICATION
     Dosage: 20 MG, UNK
     Route: 065
     Dates: start: 20170312
  31. NAPROXEN. [Concomitant]
     Active Substance: NAPROXEN
     Indication: NON-SMALL CELL LUNG CANCER
     Dosage: 1000 MG, UNK
  32. INCB24360 [Suspect]
     Active Substance: EPACADOSTAT
     Dosage: UNK
     Route: 065
     Dates: start: 20180414
  33. ATORVASTATIN [Concomitant]
     Active Substance: ATORVASTATIN
     Indication: NON-SMALL CELL LUNG CANCER
     Dosage: UNK
  34. LACTULOSE. [Concomitant]
     Active Substance: LACTULOSE
     Indication: NON-SMALL CELL LUNG CANCER
     Dosage: 5 ML, UNK
     Dates: start: 20080101
  35. DIAZEPAM. [Concomitant]
     Active Substance: DIAZEPAM
     Indication: NON-SMALL CELL LUNG CANCER
     Dosage: UNK

REACTIONS (2)
  - Neutropenia [Unknown]
  - Exfoliative rash [Unknown]

NARRATIVE: CASE EVENT DATE: 20180413
